FAERS Safety Report 11114247 (Version 1)
Quarter: 2015Q2

REPORT INFORMATION
  Report Type: Spontaneous
  Country: DE (occurrence: DE)
  Receive Date: 20150514
  Receipt Date: 20150514
  Transmission Date: 20150821
  Serious: Yes (Other)
  Sender: FDA-Public Use
  Company Number: DE-AMGEN-DEUSP2015046343

PATIENT
  Age: 47 Year
  Sex: Male

DRUGS (3)
  1. VIGANTOL                           /00318501/ [Concomitant]
     Dosage: 1500 IU, UNK
  2. ENBREL [Suspect]
     Active Substance: ETANERCEPT
     Indication: PRODUCT USED FOR UNKNOWN INDICATION
     Dosage: 25 MG, 2X/WEEK ^EVERY 3.5 DAYS^
     Route: 058
     Dates: start: 20051021
  3. SULFASALAZINE. [Concomitant]
     Active Substance: SULFASALAZINE
     Dosage: 2000 MG, UNK

REACTIONS (4)
  - Sensorimotor disorder [Unknown]
  - Hypoaesthesia [Unknown]
  - Hypoaesthesia oral [Unknown]
  - Influenza [Unknown]

NARRATIVE: CASE EVENT DATE: 20150225
